FAERS Safety Report 5186453-2 (Version None)
Quarter: 2006Q4

REPORT INFORMATION
  Report Type: 
  Country: None (occurrence: None)
  Receive Date: 20061213
  Receipt Date: 20061204
  Transmission Date: 20070319
  Serious: Yes (Other)
  Sender: FDA-Public Use
  Company Number: ENC200600001

PATIENT

DRUGS (2)
  1. ARGATROBAN [Suspect]
     Indication: SKIN ULCER
     Dosage: 20 MG, QD, INTRAVENOUS, IV DRIP
     Route: 041
     Dates: start: 20061101, end: 20061129
  2. OTHER ANALGESICS AND ANTIPYRETICS [Concomitant]

REACTIONS (2)
  - ALANINE AMINOTRANSFERASE INCREASED [None]
  - HEPATIC FUNCTION ABNORMAL [None]
